FAERS Safety Report 7626595-2 (Version None)
Quarter: 2011Q3

REPORT INFORMATION
  Report Type: 
  Country: None (occurrence: None)
  Receive Date: 20110721
  Receipt Date: 20110714
  Transmission Date: 20111222
  Serious: Yes (Other)
  Sender: FDA-Public Use
  Company Number: KR-GLAXOSMITHKLINE-B0734098A

PATIENT
  Age: 29 Year
  Sex: Male

DRUGS (2)
  1. PAXIL [Suspect]
     Indication: DEPRESSION
     Dosage: 12.5MG UNKNOWN
     Route: 065
     Dates: start: 20080101
  2. XANAX [Suspect]
     Indication: PRODUCT USED FOR UNKNOWN INDICATION
     Route: 065
     Dates: start: 20080101

REACTIONS (5)
  - SOMNOLENCE [None]
  - SWELLING FACE [None]
  - AGGRESSION [None]
  - WEIGHT INCREASED [None]
  - CLUMSINESS [None]
